FAERS Safety Report 21595818 (Version 1)
Quarter: 2022Q4

REPORT INFORMATION
  Report Type: Report from Study
  Country: US (occurrence: US)
  Receive Date: 20221115
  Receipt Date: 20221115
  Transmission Date: 20230113
  Serious: Yes (Hospitalization, Other)
  Sender: FDA-Public Use
  Company Number: US-BRISTOL-MYERS SQUIBB COMPANY-2022-136581

PATIENT
  Age: 10 Year
  Sex: Male
  Weight: 43.7 kg

DRUGS (2)
  1. NIVOLUMAB [Suspect]
     Active Substance: NIVOLUMAB
     Indication: Renal cell carcinoma
     Dosage: 480MG OR 240MG/3MG/KG (AGE-BASED DOSING)
     Route: 042
     Dates: start: 20220930, end: 20220930
  2. AXITINIB [Suspect]
     Active Substance: AXITINIB
     Indication: Renal cell carcinoma
     Dosage: 5 MG OR 2.4 MG/M2 (AGE-BASED DOSING), D1-28
     Route: 048
     Dates: start: 20220930, end: 20221007

REACTIONS (2)
  - Eosinophilia [Recovering/Resolving]
  - Chest pain [Recovered/Resolved]

NARRATIVE: CASE EVENT DATE: 20221008
